FAERS Safety Report 6588121-9 (Version None)
Quarter: 2010Q1

REPORT INFORMATION
  Report Type: 
  Country: None (occurrence: None)
  Receive Date: 20100217
  Receipt Date: 20100217
  Transmission Date: 20100710
  Serious: Yes (Hospitalization)
  Sender: FDA-Public Use
  Company Number: None

PATIENT
  Sex: Female
  Weight: 83.92 kg

DRUGS (3)
  1. CYCLOPHOSPHAMIDE [Suspect]
     Dosage: 1476 MG
  2. FLUDARABINE PHOSPHATE [Suspect]
     Dosage: 147 MG
  3. RITUXIMAB (MOAB C2B8 ANTI CD20, CHIMERIC) [Suspect]
     Dosage: 985 MG

REACTIONS (4)
  - DYSURIA [None]
  - EAR PAIN [None]
  - FEBRILE NEUTROPENIA [None]
  - TRIGEMINAL NEURALGIA [None]
